FAERS Safety Report 20735210 (Version 3)
Quarter: 2022Q2

REPORT INFORMATION
  Report Type: Spontaneous
  Country: US (occurrence: US)
  Receive Date: 20220421
  Receipt Date: 20220608
  Transmission Date: 20220720
  Serious: No
  Sender: FDA-Public Use
  Company Number: US-PFIZER INC-202200383831

PATIENT
  Age: 93 Year
  Sex: Female
  Weight: 58.957 kg

DRUGS (1)
  1. GENOTROPIN [Suspect]
     Active Substance: SOMATROPIN
     Indication: Skin disorder
     Dosage: 0.2 MG

REACTIONS (7)
  - Device programming error [Unknown]
  - Device use error [Unknown]
  - Poor quality device used [Unknown]
  - Device issue [Unknown]
  - Device breakage [Unknown]
  - Product dispensing error [Unknown]
  - Off label use [Unknown]
